FAERS Safety Report 9929957 (Version 1)
Quarter: 2014Q1

REPORT INFORMATION
  Report Type: Spontaneous
  Country: GB (occurrence: GB)
  Receive Date: 20140227
  Receipt Date: 20140227
  Transmission Date: 20141002
  Serious: Yes (Hospitalization)
  Sender: FDA-Public Use
  Company Number: PHHY2014GB023024

PATIENT
  Sex: Female

DRUGS (1)
  1. PARACETAMOL [Suspect]

REACTIONS (1)
  - Anaphylactic reaction [Unknown]
